FAERS Safety Report 21517536 (Version 1)
Quarter: 2022Q4

REPORT INFORMATION
  Report Type: Spontaneous
  Country: CN (occurrence: CN)
  Receive Date: 20221028
  Receipt Date: 20221028
  Transmission Date: 20230113
  Serious: Yes (Other)
  Sender: FDA-Public Use
  Company Number: CN-SUN PHARMACEUTICAL INDUSTRIES LTD-2022R1-360387

PATIENT
  Age: 78 Year
  Sex: Male

DRUGS (2)
  1. RIVASTIGMINE [Suspect]
     Active Substance: RIVASTIGMINE
     Indication: Dementia Alzheimer^s type
     Dosage: 3 MILLIGRAM, BID
     Route: 048
     Dates: start: 20220913, end: 20220916
  2. RIVASTIGMINE [Suspect]
     Active Substance: RIVASTIGMINE
     Dosage: 1.5 MILLIGRAM, BID
     Route: 048

REACTIONS (4)
  - Blood pressure increased [Recovered/Resolved]
  - Cold sweat [Unknown]
  - Epistaxis [Unknown]
  - Nausea [Unknown]

NARRATIVE: CASE EVENT DATE: 20220916
